FAERS Safety Report 5838450-9 (Version None)
Quarter: 2008Q3

REPORT INFORMATION
  Report Type: 
  Country: None (occurrence: None)
  Receive Date: 20080808
  Receipt Date: 20080729
  Transmission Date: 20090109
  Serious: Yes (Other)
  Sender: FDA-Public Use
  Company Number: PT-JNJFOC-20080801039

PATIENT
  Sex: Female

DRUGS (6)
  1. ZALDIAR [Suspect]
     Indication: PAIN
     Route: 048
  2. CYCLOBENZAPRINE HCL [Suspect]
     Indication: MYALGIA
     Route: 048
  3. OLMESARTAN MEDOXOMIL [Concomitant]
     Route: 065
  4. HYDROCHLOROTHIAZIDE [Concomitant]
     Route: 065
  5. ROSUVASTATIN CALCIUM [Concomitant]
     Route: 065
  6. DIOSMIN [Concomitant]
     Route: 065

REACTIONS (7)
  - DIZZINESS [None]
  - ECZEMA [None]
  - EYE SWELLING [None]
  - FATIGUE [None]
  - PRURITUS [None]
  - RASH [None]
  - TONGUE DISORDER [None]
